FAERS Safety Report 21209945 (Version 2)
Quarter: 2022Q4

REPORT INFORMATION
  Report Type: Spontaneous
  Country: US (occurrence: US)
  Receive Date: 20220813
  Receipt Date: 20221124
  Transmission Date: 20230113
  Serious: Yes (Hospitalization)
  Sender: FDA-Public Use
  Company Number: US-NOVARTISPH-NVSC2022US182517

PATIENT
  Sex: Male

DRUGS (4)
  1. PROMACTA [Suspect]
     Active Substance: ELTROMBOPAG OLAMINE
     Indication: Malignant nervous system neoplasm
     Dosage: 75 MG, QD
     Route: 048
     Dates: start: 20220712
  2. PROMACTA [Suspect]
     Active Substance: ELTROMBOPAG OLAMINE
     Indication: Endocrine neoplasm
     Dosage: 75 MG, QD
     Route: 065
     Dates: start: 202207
  3. PROMACTA [Suspect]
     Active Substance: ELTROMBOPAG OLAMINE
     Indication: Brain neoplasm malignant
  4. GLEOSTINE [Concomitant]
     Active Substance: LOMUSTINE
     Indication: Product used for unknown indication
     Dosage: UNK
     Route: 065

REACTIONS (4)
  - White blood cell count decreased [Unknown]
  - Pyrexia [Unknown]
  - Vomiting [Unknown]
  - Product use in unapproved indication [Unknown]
